FAERS Safety Report 5664021-3 (Version None)
Quarter: 2008Q1

REPORT INFORMATION
  Report Type: 
  Country: None (occurrence: None)
  Receive Date: 20080314
  Receipt Date: 20080303
  Transmission Date: 20080703
  Serious: Yes (Death, Life-Threatening, Hospitalization)
  Sender: FDA-Public Use
  Company Number: JP-BAYER-200610474BYL

PATIENT
  Age: 51 Year
  Sex: Male

DRUGS (4)
  1. CIPROXAN-I.V. [Suspect]
     Indication: URINARY TRACT INFECTION
     Dosage: TOTAL DAILY DOSE: 600 MG
     Route: 041
     Dates: start: 20060330, end: 20060403
  2. HALCION [Concomitant]
     Dosage: TOTAL DAILY DOSE: 0.25 MG
     Route: 048
  3. GASTER D [Concomitant]
     Dosage: TOTAL DAILY DOSE: 40 MG
     Route: 048
  4. ALDACTONE [Concomitant]
     Dosage: TOTAL DAILY DOSE: 50 MG
     Route: 048

REACTIONS (1)
  - INTERSTITIAL LUNG DISEASE [None]
